FAERS Safety Report 18028628 (Version 1)
Quarter: 2020Q3

REPORT INFORMATION
  Report Type: Report from Study
  Country: US (occurrence: US)
  Receive Date: 20200715
  Receipt Date: 20200715
  Transmission Date: 20201103
  Serious: Yes (Death)
  Sender: FDA-Public Use
  Company Number: US-ASTRAZENECA-2020SE88514

PATIENT
  Age: 29479 Day
  Sex: Female

DRUGS (10)
  1. DETROL [Concomitant]
     Active Substance: TOLTERODINE TARTRATE
  2. CARTIA XT [Concomitant]
     Active Substance: DILTIAZEM HYDROCHLORIDE
  3. ESCITALOPRAM OXALATE. [Concomitant]
     Active Substance: ESCITALOPRAM OXALATE
  4. CALCIUM [Concomitant]
     Active Substance: CALCIUM
  5. TRAZODONE HYDROCHLORIDE. [Concomitant]
     Active Substance: TRAZODONE HYDROCHLORIDE
  6. TAGRISSO [Suspect]
     Active Substance: OSIMERTINIB
     Indication: LUNG NEOPLASM MALIGNANT
     Route: 048
     Dates: start: 20180303
  7. FLAXSEED [Concomitant]
     Active Substance: FLAX SEED
  8. BIOTIN [Concomitant]
     Active Substance: BIOTIN
  9. FISH OIL [Concomitant]
     Active Substance: FISH OIL
  10. VITAMIN D [Concomitant]
     Active Substance: VITAMIN D NOS

REACTIONS (1)
  - Death [Fatal]

NARRATIVE: CASE EVENT DATE: 20200608
